FAERS Safety Report 19010609 (Version 4)
Quarter: 2022Q1

REPORT INFORMATION
  Report Type: Report from Study
  Country: FR (occurrence: FR)
  Receive Date: 20210315
  Receipt Date: 20220105
  Transmission Date: 20220423
  Serious: Yes (Death)
  Sender: FDA-Public Use
  Company Number: FR-PFIZER INC-2021272140

PATIENT

DRUGS (4)
  1. VINCRISTINE SULFATE [Suspect]
     Active Substance: VINCRISTINE SULFATE
     Indication: Primary mediastinal large B-cell lymphoma
     Dosage: UNK, CYCLIC EVERY 21 DAYS
  2. DOXORUBICIN HYDROCHLORIDE [Suspect]
     Active Substance: DOXORUBICIN HYDROCHLORIDE
     Indication: Primary mediastinal large B-cell lymphoma
     Dosage: UNK, CYCLIC EVERY 21 DAYS
  3. CYCLOPHOSPHAMIDE [Suspect]
     Active Substance: CYCLOPHOSPHAMIDE
     Indication: Primary mediastinal large B-cell lymphoma
     Dosage: UNK, CYCLIC EVERY 21 DAYS
  4. PREDNISONE [Suspect]
     Active Substance: PREDNISONE
     Indication: Primary mediastinal large B-cell lymphoma
     Dosage: UNK, CYCLIC EVERY 21 DAYS

REACTIONS (1)
  - Death [Fatal]
